FAERS Safety Report 24670842 (Version 1)
Quarter: 2024Q4

REPORT INFORMATION
  Report Type: Spontaneous
  Country: CN (occurrence: CN)
  Receive Date: 20241127
  Receipt Date: 20241127
  Transmission Date: 20250115
  Serious: Yes (Life-Threatening)
  Sender: GE HEALTHCARE
  Company Number: CN-GE HEALTHCARE-2024CSU013362

PATIENT
  Age: 48 Year
  Sex: Female
  Weight: 50 kg

DRUGS (4)
  1. VISIPAQUE [Suspect]
     Active Substance: IODIXANOL
     Indication: Therapeutic embolisation
     Dosage: 7 ML, TOTAL
     Route: 040
     Dates: start: 20241114, end: 20241114
  2. VISIPAQUE [Suspect]
     Active Substance: IODIXANOL
     Indication: Angiogram
  3. VISIPAQUE [Suspect]
     Active Substance: IODIXANOL
     Indication: Regional chemotherapy
  4. SODIUM CHLORIDE [Concomitant]
     Active Substance: SODIUM CHLORIDE
     Indication: Vehicle solution use
     Dosage: UNK
     Route: 040
     Dates: start: 20241114, end: 20241114

REACTIONS (7)
  - Glossoptosis [Recovered/Resolved]
  - Unresponsive to stimuli [Recovered/Resolved]
  - Loss of consciousness [Recovered/Resolved]
  - Blood pressure decreased [Recovered/Resolved]
  - Chest discomfort [Recovered/Resolved]
  - Chest pain [Recovered/Resolved]
  - Flushing [Recovered/Resolved]

NARRATIVE: CASE EVENT DATE: 20241114
